FAERS Safety Report 6076592-6 (Version None)
Quarter: 2009Q1

REPORT INFORMATION
  Report Type: 
  Country: None (occurrence: None)
  Receive Date: 20090212
  Receipt Date: 20090212
  Transmission Date: 20090719
  Serious: Yes (Hospitalization)
  Sender: FDA-Public Use
  Company Number: None

PATIENT
  Age: 73 Year
  Sex: Male

DRUGS (2)
  1. NAPROXEN [Suspect]
     Dosage: 220 MG PRN PO
     Route: 048
     Dates: start: 20090209, end: 20090210
  2. WARFARIN SODIUM [Suspect]
     Dosage: MG EVERY DAY PO
     Route: 048
     Dates: start: 20080616

REACTIONS (4)
  - COLONIC POLYP [None]
  - GASTRIC HAEMORRHAGE [None]
  - HAEMORRHOIDS [None]
  - RECTAL HAEMORRHAGE [None]
